FAERS Safety Report 9894731 (Version 3)
Quarter: 2014Q2

REPORT INFORMATION
  Report Type: Report from Study
  Country: BR (occurrence: BR)
  Receive Date: 20140213
  Receipt Date: 20140609
  Transmission Date: 20141212
  Serious: Yes (Hospitalization, Other)
  Sender: FDA-Public Use
  Company Number: BR-ABBVIE-14P-020-1199367-00

PATIENT
  Sex: Female
  Weight: 124 kg

DRUGS (15)
  1. HUMIRA [Suspect]
     Indication: ANKYLOSING SPONDYLITIS
     Route: 058
     Dates: start: 20081220, end: 20140116
  2. HUMIRA [Suspect]
     Dates: start: 201402
  3. GLIFAGE [Concomitant]
     Indication: PRODUCT USED FOR UNKNOWN INDICATION
  4. AMARYL [Concomitant]
     Indication: PRODUCT USED FOR UNKNOWN INDICATION
  5. OMEPRAZOLE [Concomitant]
     Indication: GASTRIC DISORDER
  6. HYDROCHLOROTHIAZIDE [Concomitant]
     Indication: PRODUCT USED FOR UNKNOWN INDICATION
  7. LOSARTAN [Concomitant]
     Indication: PRODUCT USED FOR UNKNOWN INDICATION
  8. AMLODIPINE [Concomitant]
     Indication: PRODUCT USED FOR UNKNOWN INDICATION
  9. CYMBALTA [Concomitant]
     Indication: FIBROMYALGIA
  10. ARTRODAR [Concomitant]
     Indication: OSTEOARTHRITIS
  11. UNKNOWN ANTI-INFLAMMATORY [Concomitant]
     Indication: PRODUCT USED FOR UNKNOWN INDICATION
  12. SIMVASTATIN [Concomitant]
     Indication: BLOOD CHOLESTEROL
  13. LOSARTAN [Concomitant]
     Indication: HYPERTENSION
  14. ARTROLIVE [Concomitant]
     Indication: ARTHRITIS
  15. ARTROLIVE [Concomitant]
     Indication: OSTEOARTHRITIS

REACTIONS (8)
  - Diabetes mellitus [Unknown]
  - Arthralgia [Unknown]
  - Arthralgia [Unknown]
  - Ankylosing spondylitis [Unknown]
  - Weight decreased [Unknown]
  - Respiratory disorder [Unknown]
  - Arthropathy [Unknown]
  - Arthropathy [Unknown]
